FAERS Safety Report 10247629 (Version 3)
Quarter: 2014Q3

REPORT INFORMATION
  Report Type: Spontaneous
  Country: PT (occurrence: None)
  Receive Date: 20140617
  Receipt Date: 20140917
  Transmission Date: 20150326
  Serious: Yes (Life-Threatening, Hospitalization, Other)
  Sender: FDA-Public Use
  Company Number: ADR-2014-01028

PATIENT
  Age: 41 Year
  Sex: Male

DRUGS (2)
  1. BACLOFEN INTRATHECAL (UNKNOWN) [Suspect]
     Active Substance: BACLOFEN
     Indication: QUADRIPARESIS
  2. BACLOFEN ORAL (UNKNOWN) [Suspect]
     Active Substance: BACLOFEN

REACTIONS (35)
  - Drug withdrawal syndrome [None]
  - Cardiovascular disorder [None]
  - Haemorrhage intracranial [None]
  - No therapeutic response [None]
  - Multi-organ failure [None]
  - Hypotension [None]
  - Autonomic dysreflexia [None]
  - Infection [None]
  - Pulseless electrical activity [None]
  - Convulsion [None]
  - Neuroleptic malignant syndrome [None]
  - Hypoglycaemia [None]
  - Electrolyte imbalance [None]
  - Metabolic disorder [None]
  - Hyperthermia [None]
  - Serotonin syndrome [None]
  - Hyperlactacidaemia [None]
  - Immune system disorder [None]
  - Cognitive disorder [None]
  - Cardiac arrest [None]
  - Tachycardia [None]
  - Electrocardiogram abnormal [None]
  - Generalised tonic-clonic seizure [None]
  - Overdose [None]
  - Cardiac failure [None]
  - Septic shock [None]
  - Metabolic acidosis [None]
  - Hypoxia [None]
  - Pneumonia [None]
  - Rhabdomyolysis [None]
  - Status epilepticus [None]
  - Acute respiratory failure [None]
  - Electrocardiogram ST segment depression [None]
  - Myocardial necrosis marker increased [None]
  - Hyperthermia malignant [None]
